FAERS Safety Report 7315766-0 (Version None)
Quarter: 2011Q1

REPORT INFORMATION
  Report Type: 
  Country: None (occurrence: None)
  Receive Date: 20110217
  Receipt Date: 20110217
  Transmission Date: 20110831
  Serious: No
  Sender: FDA-Public Use
  Company Number: None

PATIENT
  Age: 82 Year
  Sex: Female
  Weight: 54.4316 kg

DRUGS (1)
  1. CIPROFLOXACIN [Suspect]
     Indication: LOCALISED INFECTION
     Dosage: 500 MG 2 TIMES A DAY ( TOOK 3 TABS MADE ME FEEL AWFUL SO IN A DAY  AND 1/2 I STOPPED TAKING)
     Dates: start: 20110104

REACTIONS (5)
  - DIARRHOEA [None]
  - URTICARIA [None]
  - MUSCULOSKELETAL STIFFNESS [None]
  - HYPERSOMNIA [None]
  - SOMNOLENCE [None]
